FAERS Safety Report 20721584 (Version 1)
Quarter: 2022Q2

REPORT INFORMATION
  Report Type: Report from Study
  Country: US (occurrence: US)
  Receive Date: 20220418
  Receipt Date: 20220418
  Transmission Date: 20220721
  Serious: Yes (Hospitalization)
  Sender: FDA-Public Use
  Company Number: US-EXELIXIS-CABO-22050990

PATIENT
  Sex: Male
  Weight: 74.4 kg

DRUGS (12)
  1. CABOMETYX [Suspect]
     Active Substance: CABOZANTINIB S-MALATE
     Indication: Renal cell carcinoma
     Dosage: 40 MG, QD
     Route: 048
     Dates: start: 20220329, end: 20220403
  2. CABOMETYX [Suspect]
     Active Substance: CABOZANTINIB S-MALATE
     Indication: Metastases to abdominal cavity
  3. AMLODIPINE [Concomitant]
     Active Substance: AMLODIPINE BESYLATE
  4. LOSARTAN [Concomitant]
     Active Substance: LOSARTAN
  5. FEBUXOSTAT [Concomitant]
     Active Substance: FEBUXOSTAT
  6. COLCHICINE [Concomitant]
     Active Substance: COLCHICINE
  7. TRAZODONE [Concomitant]
     Active Substance: TRAZODONE HYDROCHLORIDE
  8. CRESTOR [Concomitant]
     Active Substance: ROSUVASTATIN CALCIUM
  9. METOPROLOL [Concomitant]
     Active Substance: METOPROLOL
  10. URO-MAG [Concomitant]
  11. FERROUS SULFATE [Concomitant]
     Active Substance: FERROUS SULFATE
  12. LEVOTHYROXINE [Concomitant]
     Active Substance: LEVOTHYROXINE

REACTIONS (2)
  - Haemorrhagic ascites [Unknown]
  - Blood pressure increased [Unknown]
